FAERS Safety Report 9520952 (Version 1)
Quarter: 2013Q3

REPORT INFORMATION
  Report Type: Spontaneous
  Country: US (occurrence: US)
  Receive Date: 20130913
  Receipt Date: 20130913
  Transmission Date: 20140515
  Serious: No
  Sender: FDA-Public Use
  Company Number: US-PFIZER INC-2013260965

PATIENT
  Age: 78 Year
  Sex: Female

DRUGS (4)
  1. SOLU-MEDROL [Suspect]
     Indication: ARTHRALGIA
     Dosage: UNK
  2. SOLU-MEDROL [Suspect]
     Indication: BACK PAIN
  3. SOLU-MEDROL [Suspect]
     Indication: ARTHRITIS
  4. CYMBALTA [Concomitant]

REACTIONS (1)
  - Drug ineffective [Unknown]
